FAERS Safety Report 4383909-7 (Version None)
Quarter: 2004Q2

REPORT INFORMATION
  Report Type: 
  Country: None (occurrence: None)
  Receive Date: 20040618
  Receipt Date: 20040607
  Transmission Date: 20050107
  Serious: No
  Sender: FDA-Public Use
  Company Number: 8155

PATIENT
  Age: 12 Year
  Sex: Female

DRUGS (1)
  1. METHOTREXATE [Suspect]
     Indication: BONE SARCOMA
     Dosage: 15 G ONCE  IV
     Route: 042
     Dates: start: 20040528, end: 20040528

REACTIONS (4)
  - ABDOMINAL PAIN [None]
  - DIARRHOEA [None]
  - PHARMACEUTICAL PRODUCT COMPLAINT [None]
  - SYNCOPE VASOVAGAL [None]
